FAERS Safety Report 25874141 (Version 1)
Quarter: 2025Q4

REPORT INFORMATION
  Report Type: Spontaneous
  Country: CA (occurrence: CA)
  Receive Date: 20251002
  Receipt Date: 20251002
  Transmission Date: 20260117
  Serious: Yes (Other)
  Sender: ALEXION PHARMACEUTICALS
  Company Number: CA-GSK-CA2025AMR078954

PATIENT
  Age: 6 Month
  Sex: Male
  Weight: 9 kg

DRUGS (3)
  1. NIRSEVIMAB [Suspect]
     Active Substance: NIRSEVIMAB
     Indication: Product used for unknown indication
     Dosage: UNK
  2. UNSPECIFIED INGREDIENT [Suspect]
     Active Substance: UNSPECIFIED INGREDIENT
     Indication: Prophylaxis
     Dosage: 0.5 MILLILITER
     Route: 065
  3. Diphtheria vaccine toxoid;HIB vaccine;Pertussis vaccine acellular;Poli [Concomitant]
     Indication: Prophylaxis
     Dosage: UNK
     Route: 065

REACTIONS (5)
  - Asthma [Recovered/Resolved]
  - Croup infectious [Recovered/Resolved]
  - Injection site erythema [Recovered/Resolved]
  - Product administered to patient of inappropriate age [Unknown]
  - Wrong product administered [Unknown]
